FAERS Safety Report 7829794-X (Version None)
Quarter: 2011Q4

REPORT INFORMATION
  Report Type: 
  Country: None (occurrence: None)
  Receive Date: 20111020
  Receipt Date: 20111020
  Transmission Date: 20120403
  Serious: Yes (Life-Threatening)
  Sender: FDA-Public Use
  Company Number: None

PATIENT
  Age: 19 Year
  Sex: Female
  Weight: 61.2356 kg

DRUGS (1)
  1. LUNESTA [Suspect]
     Indication: INSOMNIA
     Dosage: 1 OR 2 PILLS NIGHTLY BY MOUTH
     Route: 048
     Dates: start: 20110505, end: 20110824

REACTIONS (7)
  - SOMNAMBULISM [None]
  - ABNORMAL BEHAVIOUR [None]
  - PRODUCT QUALITY ISSUE [None]
  - IMPRISONMENT [None]
  - ROAD TRAFFIC ACCIDENT [None]
  - FEAR [None]
  - MEMORY IMPAIRMENT [None]
